FAERS Safety Report 7144376-3 (Version None)
Quarter: 2010Q4

REPORT INFORMATION
  Report Type: 
  Country: None (occurrence: None)
  Receive Date: 20101208
  Receipt Date: 20100923
  Transmission Date: 20110411
  Serious: No
  Sender: FDA-Public Use
  Company Number: US-BAYER-201022319BCC

PATIENT
  Sex: Female

DRUGS (2)
  1. MULTIVITAMIN PREPARATION + MINERAL SUPPLEMENT [Suspect]
  2. ONE A DAY ENERGY [Suspect]
     Dosage: UNK
     Dates: start: 20100901

REACTIONS (4)
  - ABDOMINAL DISCOMFORT [None]
  - NAUSEA [None]
  - URTICARIA [None]
  - WEIGHT INCREASED [None]
